FAERS Safety Report 9130311 (Version 1)
Quarter: 2013Q1

REPORT INFORMATION
  Report Type: Spontaneous
  Country: DE (occurrence: DE)
  Receive Date: 20130228
  Receipt Date: 20130228
  Transmission Date: 20140127
  Serious: Yes (Other)
  Sender: FDA-Public Use
  Company Number: GXKR2013DE000965

PATIENT
  Sex: 0

DRUGS (2)
  1. GABAPENTIN [Suspect]
     Indication: EPILEPSY
     Dosage: 100 MG, TID, GW 0.-14
     Route: 048
     Dates: start: 201110
  2. VIMPAT [Suspect]
     Indication: EPILEPSY
     Dosage: 100 MG, BID, 0.-14- GW
     Route: 048
     Dates: start: 201101

REACTIONS (1)
  - Abortion spontaneous [Recovered/Resolved]
